FAERS Safety Report 6427660-8 (Version None)
Quarter: 2009Q4

REPORT INFORMATION
  Report Type: 
  Country: None (occurrence: None)
  Receive Date: 20091105
  Receipt Date: 20091102
  Transmission Date: 20100525
  Serious: Yes (Hospitalization, Other)
  Sender: FDA-Public Use
  Company Number: US-ASTRAZENECA-2007UW14344

PATIENT
  Age: 20465 Day
  Sex: Female
  Weight: 77.1 kg

DRUGS (37)
  1. SEROQUEL [Suspect]
     Indication: BIPOLAR DISORDER
     Dosage: 100 MG TO 300 MG
     Route: 048
     Dates: start: 20041203
  2. SEROQUEL [Suspect]
     Indication: DEPRESSION
     Dosage: 100 MG TO 300 MG
     Route: 048
     Dates: start: 20041203
  3. SEROQUEL [Suspect]
     Indication: ANXIETY
     Dosage: 100 MG TO 300 MG
     Route: 048
     Dates: start: 20041203
  4. SEROQUEL [Suspect]
     Route: 048
     Dates: start: 20050101
  5. SEROQUEL [Suspect]
     Route: 048
     Dates: start: 20050101
  6. SEROQUEL [Suspect]
     Route: 048
     Dates: start: 20050101
  7. REMERON [Concomitant]
     Indication: SLEEP DISORDER
     Dates: start: 20020618
  8. ALLEGRA [Concomitant]
  9. XANAX [Concomitant]
  10. NEXIUM [Concomitant]
  11. TOLECTIN [Concomitant]
  12. TRAMADOL HCL [Concomitant]
  13. LORTAB [Concomitant]
  14. PLAVIX [Concomitant]
  15. STARLIX [Concomitant]
  16. ASPIRIN [Concomitant]
  17. NEURONTIN [Concomitant]
     Dates: start: 20020618
  18. ACCUPRIL [Concomitant]
     Dates: start: 20020618
  19. GLYSET [Concomitant]
  20. COZAAR [Concomitant]
  21. PHAZYME [Concomitant]
  22. BACLOFEN [Concomitant]
  23. LANTUS [Concomitant]
  24. AMBIEN [Concomitant]
     Indication: SLEEP DISORDER
     Dates: start: 20020618
  25. METOPROLOL [Concomitant]
  26. TRICOR [Concomitant]
  27. LUNESTA [Concomitant]
  28. BACTROBAN [Concomitant]
  29. SIMVASTATIN [Concomitant]
  30. DETROL LA [Concomitant]
  31. HYDROXYZINE HCL [Concomitant]
  32. PAXIL [Concomitant]
     Dates: start: 20021107
  33. NITROSTAT [Concomitant]
  34. ACTONEL [Concomitant]
  35. HYDROCODONE [Concomitant]
  36. MUCINEX [Concomitant]
  37. NOVOLOG MIX 70/30 [Concomitant]

REACTIONS (23)
  - ACUTE SINUSITIS [None]
  - ARTHRALGIA [None]
  - CARDIAC FAILURE CONGESTIVE [None]
  - DEHYDRATION [None]
  - DIABETES MELLITUS [None]
  - DIABETIC KETOACIDOSIS [None]
  - DIARRHOEA [None]
  - DRUG TOXICITY [None]
  - GASTROOESOPHAGEAL REFLUX DISEASE [None]
  - HYPERLIPIDAEMIA [None]
  - HYPERTENSION [None]
  - HYPOALBUMINAEMIA [None]
  - HYPOGLYCAEMIA [None]
  - HYPOKALAEMIA [None]
  - HYPOTENSION [None]
  - MUSCLE SPASTICITY [None]
  - OSTEOPOROSIS [None]
  - PERONEAL NERVE PALSY [None]
  - RIB FRACTURE [None]
  - SEPSIS SYNDROME [None]
  - SPINAL OSTEOARTHRITIS [None]
  - URINARY TRACT INFECTION [None]
  - VOMITING [None]
